FAERS Safety Report 10242059 (Version 1)
Quarter: 2014Q2

REPORT INFORMATION
  Report Type: Spontaneous
  Country: US (occurrence: None)
  Receive Date: 20140613
  Receipt Date: 20140613
  Transmission Date: 20141212
  Serious: Yes (Hospitalization)
  Sender: FDA-Public Use
  Company Number: UNT-2014-001470

PATIENT
  Age: 49 Year
  Sex: Female
  Weight: 70.3 kg

DRUGS (4)
  1. REMODULIN (TREPROSTINIL SODIUM) INJECTION, 1MG/ML [Suspect]
     Indication: COR PULMONALE CHRONIC
     Route: 041
     Dates: start: 20140521
  2. TYVASO (TREPROSTINIL SODIUM) INHALATION GAS, 0.6MG/ML [Suspect]
     Indication: COR PULMONALE CHRONIC
     Route: 055
     Dates: start: 20140210
  3. REVATIO (SILDENAFIL CITRATE) [Concomitant]
  4. OPSUMIT (MACITENTAN) [Concomitant]

REACTIONS (3)
  - Pulmonary arterial hypertension [None]
  - Pain in jaw [None]
  - Nausea [None]
